FAERS Safety Report 6527459-8 (Version None)
Quarter: 2010Q1

REPORT INFORMATION
  Report Type: 
  Country: None (occurrence: None)
  Receive Date: 20100105
  Receipt Date: 20091223
  Transmission Date: 20100710
  Serious: Yes (Congenital Anomaly, Other)
  Sender: FDA-Public Use
  Company Number: GB-WATSON-2009-11113

PATIENT

DRUGS (3)
  1. LAMOTRIGINE (WATSON LABORATORIES) [Suspect]
     Indication: EPILEPSY
     Dosage: 100 DF,DAILY
     Route: 064
  2. VALPROATE SODIUM [Suspect]
     Indication: EPILEPSY
     Dosage: 2000 MG, DAILY
     Route: 064
  3. FOLIC ACID [Concomitant]
     Indication: DRUG USE FOR UNKNOWN INDICATION
     Dosage: 5 MG, UNK
     Route: 064

REACTIONS (1)
  - AUTISM [None]
